FAERS Safety Report 8140333-9 (Version None)
Quarter: 2012Q1

REPORT INFORMATION
  Report Type: 
  Country: None (occurrence: None)
  Receive Date: 20120216
  Receipt Date: 20120213
  Transmission Date: 20120608
  Serious: No
  Sender: FDA-Public Use
  Company Number: US-PFIZER INC-2012040197

PATIENT
  Sex: Female
  Weight: 102 kg

DRUGS (7)
  1. ALBUTEROL [Concomitant]
     Indication: ASTHMA
     Dosage: 0.83MG/2.5ML
  2. CELEBREX [Concomitant]
     Indication: OSTEOPOROSIS
     Dosage: 200 MG, DAILY
  3. LISINOPRIL [Concomitant]
     Indication: HYPERTENSION
     Dosage: 40 MG, DAILY
  4. CELEBREX [Concomitant]
     Indication: ARTHRITIS
  5. LYRICA [Suspect]
     Indication: SPINAL FRACTURE
     Dosage: 3X200MG DAILY
  6. HYDROCODONE [Concomitant]
     Indication: PAIN
     Dosage: 500 MG, EVERY 4 HRS
  7. ADVAIR DISKUS 100/50 [Concomitant]
     Indication: ASTHMA
     Dosage: 250/50MCG

REACTIONS (1)
  - DIZZINESS [None]
